FAERS Safety Report 7372333-0 (Version None)
Quarter: 2011Q1

REPORT INFORMATION
  Report Type: 
  Country: None (occurrence: None)
  Receive Date: 20110324
  Receipt Date: 20110317
  Transmission Date: 20110831
  Serious: Yes (Hospitalization)
  Sender: FDA-Public Use
  Company Number: B0706522A

PATIENT
  Sex: Female
  Weight: 11.7 kg

DRUGS (4)
  1. PIVALONE [Suspect]
     Indication: BRONCHITIS
     Dosage: 1UNIT THREE TIMES PER DAY
     Route: 045
     Dates: start: 20101112, end: 20101118
  2. CELESTONE [Suspect]
     Indication: BRONCHITIS
     Dosage: 30DROP TWICE PER DAY
     Route: 048
     Dates: start: 20101112, end: 20101118
  3. MAXILASE [Suspect]
     Indication: BRONCHITIS
     Dosage: 1UNIT PER DAY
     Route: 048
     Dates: start: 20101112, end: 20101118
  4. AUGMENTIN [Suspect]
     Indication: BRONCHITIS
     Dosage: 1UNIT THREE TIMES PER DAY
     Route: 048
     Dates: start: 20101112, end: 20101118

REACTIONS (4)
  - SKIN LESION [None]
  - SWELLING [None]
  - URTICARIA [None]
  - RASH [None]
